FAERS Safety Report 11887298 (Version 2)
Quarter: 2016Q1

REPORT INFORMATION
  Report Type: Report from Study
  Country: DE (occurrence: DE)
  Receive Date: 20160104
  Receipt Date: 20160107
  Transmission Date: 20160526
  Serious: Yes (Hospitalization)
  Sender: FDA-Public Use
  Company Number: DE-ABBVIE-15P-062-1528400-00

PATIENT
  Age: 41 Year
  Sex: Male
  Weight: 65 kg

DRUGS (6)
  1. KALETRA [Suspect]
     Active Substance: LOPINAVIR\RITONAVIR
     Indication: HIV INFECTION
     Dosage: 800/100MG
     Route: 048
     Dates: start: 20070817
  2. CELSENTRI [Concomitant]
     Active Substance: MARAVIROC
     Indication: PRODUCT USED FOR UNKNOWN INDICATION
     Dates: start: 20120817
  3. TIVICAY [Concomitant]
     Active Substance: DOLUTEGRAVIR SODIUM
     Indication: PRODUCT USED FOR UNKNOWN INDICATION
     Dates: start: 20150515
  4. KIVEXA [Concomitant]
     Active Substance: ABACAVIR SULFATE\LAMIVUDINE
     Indication: PRODUCT USED FOR UNKNOWN INDICATION
     Dosage: 600/300MG
     Dates: start: 20070817
  5. INTELENCE [Concomitant]
     Active Substance: ETRAVIRINE
     Indication: PRODUCT USED FOR UNKNOWN INDICATION
     Dates: start: 20120817
  6. INVIRASE [Concomitant]
     Active Substance: SAQUINAVIR MESYLATE
     Indication: PRODUCT USED FOR UNKNOWN INDICATION
     Dates: start: 20070817

REACTIONS (4)
  - Abdominal pain [Unknown]
  - Anxiety [Unknown]
  - Subcutaneous abscess [Recovered/Resolved]
  - Low density lipoprotein abnormal [Unknown]

NARRATIVE: CASE EVENT DATE: 20150602
